FAERS Safety Report 14097951 (Version 1)
Quarter: 2017Q4

REPORT INFORMATION
  Report Type: Spontaneous
  Country: None (occurrence: US)
  Receive Date: 20171017
  Receipt Date: 20171017
  Transmission Date: 20180321
  Serious: No
  Sender: FDA-Public Use
  Company Number: US-MYLANLABS-2017M1048109

PATIENT

DRUGS (2)
  1. CLONIDINE. [Suspect]
     Active Substance: CLONIDINE
     Indication: HYPERTENSION
     Dosage: UNK
     Dates: start: 2017, end: 2017
  2. CLONIDINE TRANSDERMAL SYSTEM [Concomitant]
     Active Substance: CLONIDINE
     Indication: BLOOD PRESSURE MEASUREMENT
     Dosage: UNK

REACTIONS (2)
  - Application site burn [Not Recovered/Not Resolved]
  - Application site hypersensitivity [None]

NARRATIVE: CASE EVENT DATE: 2017
